FAERS Safety Report 10555047 (Version 1)
Quarter: 2014Q4

REPORT INFORMATION
  Report Type: Spontaneous
  Country: JP (occurrence: JP)
  Receive Date: 20141030
  Receipt Date: 20141030
  Transmission Date: 20150529
  Serious: Yes (Hospitalization)
  Sender: FDA-Public Use
  Company Number: JP-BRISTOL-MYERS SQUIBB COMPANY-21543665

PATIENT
  Age: 77 Year
  Sex: Male
  Weight: 60 kg

DRUGS (4)
  1. WARFARIN SODIUM. [Suspect]
     Active Substance: WARFARIN SODIUM
     Dosage: 2.25 MG ON 30-MAY-2013; 2 MG ON 18-JUL-2013; 3 MG ON 08-FEB-2014 AND 2 MG ON 18-FEB-2014.
  2. CLOPIDOGREL BISULFATE. [Suspect]
     Active Substance: CLOPIDOGREL BISULFATE
  3. ASPIRIN. [Suspect]
     Active Substance: ASPIRIN
  4. CILOSTAZOL. [Suspect]
     Active Substance: CILOSTAZOL

REACTIONS (6)
  - Cerebral artery embolism [Unknown]
  - Epistaxis [Unknown]
  - Transient ischaemic attack [Unknown]
  - Chest pain [Unknown]
  - Cerebellar embolism [Unknown]
  - Blood pressure decreased [Unknown]

NARRATIVE: CASE EVENT DATE: 20140208
